FAERS Safety Report 9501958 (Version 1)
Quarter: 2013Q3

REPORT INFORMATION
  Report Type: Spontaneous
  Country: US (occurrence: US)
  Receive Date: 20130905
  Receipt Date: 20130905
  Transmission Date: 20140515
  Serious: Yes (Hospitalization, Other)
  Sender: FDA-Public Use
  Company Number: US-TEVA-430326USA

PATIENT
  Age: 20 Year
  Sex: Female

DRUGS (6)
  1. MESALAZINE [Suspect]
     Indication: COLITIS ULCERATIVE
     Dosage: ENEMAS
     Route: 054
  2. SULFASALAZINE [Suspect]
     Indication: COLITIS ULCERATIVE
     Route: 048
  3. BALSALAZIDE [Suspect]
     Indication: COLITIS ULCERATIVE
     Dosage: LOW-DOSE
     Route: 048
  4. HYDROCORTISONE [Concomitant]
     Indication: COLITIS ULCERATIVE
     Dosage: ENEMAS
     Route: 054
  5. IBUPROFEN [Concomitant]
     Indication: MYOCARDITIS
     Route: 065
  6. COLCHICINE [Concomitant]
     Indication: MYOCARDITIS
     Route: 065

REACTIONS (2)
  - Myocarditis [Recovering/Resolving]
  - Cardiac tamponade [Recovering/Resolving]
